FAERS Safety Report 19373568 (Version 1)
Quarter: 2021Q2

REPORT INFORMATION
  Report Type: Spontaneous
  Country: MY (occurrence: MY)
  Receive Date: 20210603
  Receipt Date: 20210603
  Transmission Date: 20210717
  Serious: Yes (Death, Life-Threatening, Hospitalization)
  Sender: FDA-Public Use
  Company Number: MY-TEVA-2021-MY-1919882

PATIENT
  Age: 30 Year
  Sex: Male

DRUGS (6)
  1. TELMISARTAN. [Concomitant]
     Active Substance: TELMISARTAN
     Indication: NEPHROTIC SYNDROME
     Route: 065
  2. SIMVASTATIN. [Interacting]
     Active Substance: SIMVASTATIN
     Indication: NEPHROTIC SYNDROME
     Route: 065
  3. DILTIAZEM. [Interacting]
     Active Substance: DILTIAZEM
     Indication: DRUG THERAPY
     Route: 065
  4. PREDNISOLONE. [Suspect]
     Active Substance: PREDNISOLONE
     Indication: NEPHROTIC SYNDROME
     Route: 065
  5. CYCLOSPORIN A [Interacting]
     Active Substance: CYCLOSPORINE
     Indication: NEPHROTIC SYNDROME
     Route: 048
  6. SIMVASTATIN. [Interacting]
     Active Substance: SIMVASTATIN
     Indication: HYPERLIPIDAEMIA

REACTIONS (6)
  - Acute kidney injury [Unknown]
  - Drug interaction [Fatal]
  - Rhabdomyolysis [Fatal]
  - Metabolic syndrome [Unknown]
  - Cushingoid [Unknown]
  - Embolism venous [Fatal]
